FAERS Safety Report 19390043 (Version 1)
Quarter: 2021Q2

REPORT INFORMATION
  Report Type: Spontaneous
  Country: TR (occurrence: TR)
  Receive Date: 20210608
  Receipt Date: 20210608
  Transmission Date: 20210717
  Serious: Yes (Other)
  Sender: FDA-Public Use
  Company Number: NVSC2021TR127046

PATIENT
  Age: 28 Year
  Sex: Female

DRUGS (1)
  1. TEGRETOL [Suspect]
     Active Substance: CARBAMAZEPINE
     Indication: INFANTILE SPASMS
     Dosage: TABLET 160
     Route: 065

REACTIONS (2)
  - Product supply issue [Unknown]
  - Seizure [Unknown]
